FAERS Safety Report 10595286 (Version 3)
Quarter: 2015Q1

REPORT INFORMATION
  Report Type: Spontaneous
  Country: US (occurrence: US)
  Receive Date: 20141120
  Receipt Date: 20150114
  Transmission Date: 20150720
  Serious: Yes (Hospitalization, Other)
  Sender: FDA-Public Use
  Company Number: US-AMGEN-USASP2014088577

PATIENT
  Age: 65 Year
  Sex: Male
  Weight: 108 kg

DRUGS (1)
  1. ARANESP [Suspect]
     Active Substance: DARBEPOETIN ALFA
     Indication: NEPHROGENIC ANAEMIA
     Dosage: 200 MUG, QWK
     Route: 042
     Dates: start: 20140107

REACTIONS (3)
  - Aplasia pure red cell [Unknown]
  - Anaemia [Recovering/Resolving]
  - Reticulocyte count decreased [Recovering/Resolving]

NARRATIVE: CASE EVENT DATE: 20141030
